FAERS Safety Report 7292656-3 (Version None)
Quarter: 2011Q1

REPORT INFORMATION
  Report Type: 
  Country: None (occurrence: None)
  Receive Date: 20110215
  Receipt Date: 20110204
  Transmission Date: 20110831
  Serious: Yes (Hospitalization)
  Sender: FDA-Public Use
  Company Number: FR-SANOFI-AVENTIS-2011SA007349

PATIENT
  Age: 66 Year
  Sex: Male

DRUGS (6)
  1. ALDACTONE [Suspect]
     Route: 048
     Dates: start: 20100901, end: 20101208
  2. DIFFU K [Suspect]
     Route: 048
     Dates: start: 20100901, end: 20101208
  3. PERINDOPRIL [Suspect]
     Route: 048
     Dates: start: 20100901, end: 20101208
  4. LASIX [Suspect]
     Route: 048
     Dates: start: 20100901, end: 20101208
  5. ASPIRIN [Concomitant]
  6. CARDENSIEL [Concomitant]

REACTIONS (4)
  - METABOLIC ACIDOSIS [None]
  - HYPERKALAEMIA [None]
  - RENAL FAILURE ACUTE [None]
  - DEHYDRATION [None]
